FAERS Safety Report 18739480 (Version 1)
Quarter: 2021Q1

REPORT INFORMATION
  Report Type: Spontaneous
  Country: US (occurrence: US)
  Receive Date: 20210113
  Receipt Date: 20210113
  Transmission Date: 20210419
  Serious: No
  Sender: FDA-Public Use
  Company Number: None

PATIENT
  Age: 14 Year
  Sex: Male

DRUGS (1)
  1. SIKLOS [Suspect]
     Active Substance: HYDROXYUREA
     Indication: SICKLE CELL DISEASE
     Dosage: ?          OTHER DOSE:1.5 TABLETS;?
     Route: 048
     Dates: start: 20200804

REACTIONS (3)
  - Abdominal pain upper [None]
  - Weight increased [None]
  - Decreased appetite [None]

NARRATIVE: CASE EVENT DATE: 202012
